FAERS Safety Report 14267809 (Version 1)
Quarter: 2017Q4

REPORT INFORMATION
  Report Type: Spontaneous
  Country: US (occurrence: US)
  Receive Date: 20171211
  Receipt Date: 20171211
  Transmission Date: 20180321
  Serious: No
  Sender: FDA-Public Use
  Company Number: US-BAYER-2017-236946

PATIENT
  Sex: Male
  Weight: 104.31 kg

DRUGS (11)
  1. CALCIUM [Concomitant]
     Active Substance: CALCIUM
  2. FIBER [Concomitant]
     Active Substance: PSYLLIUM HUSK
  3. ATORVASTATIN [Concomitant]
     Active Substance: ATORVASTATIN
  4. PREDNISONE. [Concomitant]
     Active Substance: PREDNISONE
     Dosage: 5 MG, QOD
  5. METOPROLOL. [Concomitant]
     Active Substance: METOPROLOL
  6. MIRALAX [Suspect]
     Active Substance: POLYETHYLENE GLYCOL 3350
     Dosage: 0.5 DF, QD
     Route: 048
  7. MIRALAX [Suspect]
     Active Substance: POLYETHYLENE GLYCOL 3350
     Dosage: 0.5 DF, QD
     Route: 048
     Dates: start: 2017
  8. LINZESS [Concomitant]
     Active Substance: LINACLOTIDE
  9. IOPIDINE [Concomitant]
     Active Substance: APRACLONIDINE HYDROCHLORIDE
  10. VITAMIN B12 [Concomitant]
     Active Substance: CYANOCOBALAMIN
  11. LISINOPRIL. [Concomitant]
     Active Substance: LISINOPRIL

REACTIONS (3)
  - Urine odour abnormal [Not Recovered/Not Resolved]
  - Wrong technique in product usage process [Unknown]
  - Abnormal faeces [Not Recovered/Not Resolved]
